FAERS Safety Report 23086049 (Version 6)
Quarter: 2024Q3

REPORT INFORMATION
  Report Type: Report from Study
  Country: US (occurrence: US)
  Receive Date: 20231019
  Receipt Date: 20240926
  Transmission Date: 20241016
  Serious: Yes (Hospitalization, Other)
  Sender: JAZZ
  Company Number: US-JAZZ PHARMACEUTICALS-2023-US-014711

PATIENT
  Age: 35 Year
  Sex: Female

DRUGS (19)
  1. XYWAV [Suspect]
     Active Substance: CALCIUM OXYBATE\MAGNESIUM OXYBATE\POTASSIUM OXYBATE\SODIUM OXYBATE
     Indication: Narcolepsy
     Dosage: 3 GRAM, BID
  2. XYWAV [Suspect]
     Active Substance: CALCIUM OXYBATE\MAGNESIUM OXYBATE\POTASSIUM OXYBATE\SODIUM OXYBATE
     Indication: Cataplexy
     Dosage: 4.5 GRAM, BID
     Dates: start: 20230613
  3. XYWAV [Suspect]
     Active Substance: CALCIUM OXYBATE\MAGNESIUM OXYBATE\POTASSIUM OXYBATE\SODIUM OXYBATE
     Indication: Somnolence
  4. TRAMADOL HCL [Suspect]
     Active Substance: TRAMADOL HYDROCHLORIDE
     Indication: Product used for unknown indication
     Dosage: 50 MILLIGRAM
     Dates: start: 20240701
  5. CELEBREX [Suspect]
     Active Substance: CELECOXIB
     Indication: Product used for unknown indication
     Dosage: UNK
     Dates: start: 20230901
  6. ZINC [Concomitant]
     Active Substance: ZINC
     Indication: Product used for unknown indication
     Dosage: UNK
  7. VITAMINS NOS [Concomitant]
     Active Substance: VITAMINS
     Indication: Product used for unknown indication
     Dosage: UNK
  8. SUNOSI [Concomitant]
     Active Substance: SOLRIAMFETOL
     Indication: Product used for unknown indication
     Dosage: UNK
     Dates: start: 20231107
  9. SUNOSI [Concomitant]
     Active Substance: SOLRIAMFETOL
     Dosage: UNK 150 MG TABLET
     Dates: start: 20230101
  10. TOPIRAMATE [Concomitant]
     Active Substance: TOPIRAMATE
     Indication: Product used for unknown indication
     Dosage: UNK
     Dates: start: 20240122
  11. AMLODIPINE BESYLATE [Concomitant]
     Active Substance: AMLODIPINE BESYLATE
     Indication: Product used for unknown indication
     Dosage: UNK
     Dates: start: 20240206
  12. CRESTOR [Concomitant]
     Active Substance: ROSUVASTATIN CALCIUM
     Indication: Product used for unknown indication
     Dosage: UNK
     Dates: start: 20240210
  13. ASPIRIN [Concomitant]
     Active Substance: ASPIRIN
     Indication: Product used for unknown indication
     Dosage: UNK
     Dates: start: 20240210
  14. NITRO BID [Concomitant]
     Indication: Product used for unknown indication
     Dosage: UNK
     Dates: start: 20240210
  15. ZOFRAN [Concomitant]
     Active Substance: ONDANSETRON HYDROCHLORIDE
     Indication: Product used for unknown indication
     Dosage: UNK
  16. METHOCARBAMOL [Concomitant]
     Active Substance: METHOCARBAMOL
     Indication: Product used for unknown indication
     Dosage: UNK
     Dates: start: 20240420
  17. METHYLPREDNISOLONE [Concomitant]
     Active Substance: METHYLPREDNISOLONE
     Indication: Product used for unknown indication
     Dosage: 8 MILLIGRAM 2 TABLETS FOR 7 DAYS, THEN 1 TABLET FOR 7 DAYS AS NEEDED
  18. TRIAMCINOLONE [Concomitant]
     Active Substance: TRIAMCINOLONE
     Indication: Product used for unknown indication
     Dosage: UNK
  19. DILTIAZEM [Concomitant]
     Active Substance: DILTIAZEM
     Indication: Product used for unknown indication
     Dosage: 0000
     Dates: start: 20240701

REACTIONS (23)
  - Pneumothorax [Recovered/Resolved]
  - Epilepsy [Unknown]
  - Systemic lupus erythematosus [Unknown]
  - Feeling abnormal [Unknown]
  - Gastrointestinal disorder [Unknown]
  - Nausea [Unknown]
  - Vomiting [Unknown]
  - Gastrointestinal polyp [Unknown]
  - Traumatic liver injury [Recovered/Resolved]
  - Gastritis [Unknown]
  - Raynaud^s phenomenon [Unknown]
  - Glucose tolerance impaired [Unknown]
  - Hyperlipidaemia [Unknown]
  - Kyphosis [Unknown]
  - Scoliosis [Unknown]
  - Headache [Unknown]
  - Borderline personality disorder [Unknown]
  - Blood sodium decreased [Unknown]
  - Drug hypersensitivity [Unknown]
  - Therapeutic product effect variable [Unknown]
  - Intentional product use issue [Unknown]
  - Intentional dose omission [Unknown]
  - Treatment noncompliance [Unknown]

NARRATIVE: CASE EVENT DATE: 20231101
